FAERS Safety Report 12706995 (Version 3)
Quarter: 2016Q3

REPORT INFORMATION
  Report Type: Report from Study
  Country: BE (occurrence: BE)
  Receive Date: 20160901
  Receipt Date: 20160920
  Transmission Date: 20161109
  Serious: Yes (Hospitalization)
  Sender: FDA-Public Use
  Company Number: PHHY2016BE057173

PATIENT
  Age: 65 Year
  Sex: Male
  Weight: 70.3 kg

DRUGS (2)
  1. REMERGON [Concomitant]
     Active Substance: MIRTAZAPINE
     Indication: PRODUCT USED FOR UNKNOWN INDICATION
     Dosage: 15 MG, UNK
     Route: 065
     Dates: end: 20160819
  2. LDK378 [Suspect]
     Active Substance: CERITINIB
     Indication: NON-SMALL CELL LUNG CANCER METASTATIC
     Dosage: 600 MG, QD
     Route: 048
     Dates: start: 20120621, end: 20160817

REACTIONS (6)
  - Chest pain [Not Recovered/Not Resolved]
  - Tachycardia [Not Recovered/Not Resolved]
  - Orthopnoea [Not Recovered/Not Resolved]
  - Cognitive disorder [Recovering/Resolving]
  - Dyspnoea [Not Recovered/Not Resolved]
  - Nervous system disorder [Recovering/Resolving]

NARRATIVE: CASE EVENT DATE: 20160420
